FAERS Safety Report 14974253 (Version 1)
Quarter: 2018Q2

REPORT INFORMATION
  Report Type: Spontaneous
  Country: US (occurrence: US)
  Receive Date: 20180605
  Receipt Date: 20180605
  Transmission Date: 20180711
  Serious: Yes (Other)
  Sender: FDA-Public Use
  Company Number: US-OTSUKA-2018_014171

PATIENT
  Sex: Female

DRUGS (1)
  1. ABILIFY MAINTENA [Suspect]
     Active Substance: ARIPIPRAZOLE
     Indication: DEPRESSION
     Dosage: 400 MG, QM
     Route: 030
     Dates: start: 20180424

REACTIONS (7)
  - Headache [Unknown]
  - Seizure [Unknown]
  - Dyspnoea [Unknown]
  - Chest pain [Unknown]
  - Facial paralysis [Unknown]
  - Pain [Unknown]
  - Product use in unapproved indication [Unknown]
